FAERS Safety Report 9369120 (Version 1)
Quarter: 2013Q2

REPORT INFORMATION
  Report Type: Spontaneous
  Country: BR (occurrence: BR)
  Receive Date: 20130626
  Receipt Date: 20130626
  Transmission Date: 20140414
  Serious: Yes (Other)
  Sender: FDA-Public Use
  Company Number: PHHY2013BR065128

PATIENT
  Sex: Female
  Weight: 82 kg

DRUGS (5)
  1. DIOVAN [Suspect]
     Indication: HYPERTENSION
     Dosage: 2 DF, (80 MG, 1 IN THE MORNING AND 1 AT NIGHT) PER DAY
     Route: 048
  2. DIOVAN [Suspect]
     Indication: DIABETES MELLITUS
  3. DIOVAN [Suspect]
     Indication: OFF LABEL USE
  4. MANIVASC [Concomitant]
     Indication: HYPERTENSION
     Dosage: 2 DF, (1 IN THE MORNING AND 1 AT NIGHT) PER DAY
  5. MANIVASC [Concomitant]
     Indication: DIABETES MELLITUS

REACTIONS (1)
  - Renal disorder [Not Recovered/Not Resolved]
